FAERS Safety Report 7647125-5 (Version None)
Quarter: 2011Q3

REPORT INFORMATION
  Report Type: 
  Country: None (occurrence: None)
  Receive Date: 20110801
  Receipt Date: 20110721
  Transmission Date: 20111222
  Serious: Yes (Hospitalization)
  Sender: FDA-Public Use
  Company Number: JP-JNJFOC-20110710937

PATIENT
  Age: 79 Year
  Sex: Female

DRUGS (2)
  1. TIAPRIDE HYDROCHLORIDE [Suspect]
     Indication: PSYCHOTIC DISORDER
     Route: 065
  2. RISPERIDONE [Suspect]
     Indication: MEMORY IMPAIRMENT
     Route: 048

REACTIONS (1)
  - COGNITIVE DISORDER [None]
